FAERS Safety Report 8906413 (Version 1)
Quarter: 2012Q4

REPORT INFORMATION
  Report Type: Spontaneous
  Country: US (occurrence: None)
  Receive Date: 20121109
  Receipt Date: 20121109
  Transmission Date: 20130627
  Serious: Yes (Disabling)
  Sender: FDA-Public Use
  Company Number: None

PATIENT
  Age: 82 Year
  Sex: Male
  Weight: 68.04 kg

DRUGS (1)
  1. VIAGRA [Suspect]
     Indication: SEXUAL PROBLEM
     Dates: start: 2007, end: 2010

REACTIONS (2)
  - Pain in jaw [None]
  - Temporal arteritis [None]
